FAERS Safety Report 6902959-7 (Version None)
Quarter: 2010Q3

REPORT INFORMATION
  Report Type: 
  Country: None (occurrence: None)
  Receive Date: 20100803
  Receipt Date: 20080819
  Transmission Date: 20110219
  Serious: No
  Sender: FDA-Public Use
  Company Number: US-PFIZER INC-2008070279

PATIENT
  Age: 61 Year
  Sex: Female
  Weight: 86.18 kg

DRUGS (2)
  1. LYRICA [Suspect]
     Indication: PAIN IN EXTREMITY
     Dates: start: 20080101
  2. LYRICA [Suspect]
     Indication: BACK PAIN

REACTIONS (1)
  - DISORIENTATION [None]
